FAERS Safety Report 18159638 (Version 3)
Quarter: 2021Q3

REPORT INFORMATION
  Report Type: Spontaneous
  Country: US (occurrence: US)
  Receive Date: 20200817
  Receipt Date: 20210913
  Transmission Date: 20211014
  Serious: Yes (Other)
  Sender: FDA-Public Use
  Company Number: US-PURDUE-USA-2020-0160790

PATIENT
  Sex: Male

DRUGS (3)
  1. VICODIN [Suspect]
     Active Substance: ACETAMINOPHEN\HYDROCODONE BITARTRATE
     Indication: PRODUCT USED FOR UNKNOWN INDICATION
     Dosage: UNKNOWN
     Route: 065
     Dates: start: 1999
  2. HYDROCODONE BITARTRATE AND ACETAMINOPHEN [Suspect]
     Active Substance: ACETAMINOPHEN\HYDROCODONE BITARTRATE
     Indication: PRODUCT USED FOR UNKNOWN INDICATION
     Dosage: 5/500, UNKNOWN
     Route: 048
     Dates: start: 1999
  3. HYDROCODONE BITARTRATE (SIMILAR TO NDA 206627) [Suspect]
     Active Substance: HYDROCODONE BITARTRATE
     Indication: PRODUCT USED FOR UNKNOWN INDICATION
     Dosage: UNKNOWN
     Route: 048
     Dates: start: 1999

REACTIONS (13)
  - Rectal haemorrhage [Unknown]
  - Drug dependence [Unknown]
  - Erectile dysfunction [Unknown]
  - Constipation [Unknown]
  - Anxiety [Unknown]
  - Positron emission tomogram abnormal [Unknown]
  - Confusional state [Unknown]
  - Haemorrhoids [Unknown]
  - Depression [Unknown]
  - Hypogonadism male [Unknown]
  - Sleep deficit [Unknown]
  - Unevaluable event [Unknown]
  - Sleep apnoea syndrome [Unknown]
